FAERS Safety Report 13155021 (Version 1)
Quarter: 2017Q1

REPORT INFORMATION
  Report Type: Spontaneous
  Country: US (occurrence: US)
  Receive Date: 20170126
  Receipt Date: 20170126
  Transmission Date: 20170428
  Serious: No
  Sender: FDA-Public Use
  Company Number: US-PFIZER INC-2015205004

PATIENT
  Sex: Male

DRUGS (1)
  1. AROMASIN [Suspect]
     Active Substance: EXEMESTANE
     Indication: PROSTATE CANCER
     Dosage: UNK

REACTIONS (4)
  - Pre-existing condition improved [Unknown]
  - Product use issue [Unknown]
  - Weight increased [Unknown]
  - Therapeutic response unexpected [Unknown]
